FAERS Safety Report 21481647 (Version 1)
Quarter: 2022Q4

REPORT INFORMATION
  Report Type: Spontaneous
  Country: CN (occurrence: CN)
  Receive Date: 20221020
  Receipt Date: 20221020
  Transmission Date: 20230113
  Serious: Yes (Other)
  Sender: FDA-Public Use
  Company Number: None

PATIENT
  Age: 54 Year
  Sex: Female
  Weight: 64 kg

DRUGS (7)
  1. CYCLOPHOSPHAMIDE [Suspect]
     Active Substance: CYCLOPHOSPHAMIDE
     Indication: Breast cancer female
     Dosage: 870 MG, QD, (DILUTED WITH NS 45 ML) (SECOND CHEMOTHERAPY)
     Route: 042
     Dates: start: 20220707, end: 20220707
  2. CYCLOPHOSPHAMIDE [Suspect]
     Active Substance: CYCLOPHOSPHAMIDE
     Indication: Chemotherapy
  3. SODIUM CHLORIDE [Suspect]
     Active Substance: SODIUM CHLORIDE
     Indication: Medication dilution
     Dosage: 45 ML, QD, (DILUTED WITH CYCLOPHOSPHAMIDE 870 MG) (SECOND CHEMOTHERAPY)
     Route: 042
     Dates: start: 20220707, end: 20220707
  4. SODIUM CHLORIDE [Suspect]
     Active Substance: SODIUM CHLORIDE
     Dosage: 100 ML, QD ,(DILUTED WITH EPIRUBICIN HYDROCHLORIDE [AIDASHENG] 127 MG) (SECOND CHEMOTHERAPY)
     Route: 041
     Dates: start: 20220707, end: 20220707
  5. EPIRUBICIN HYDROCHLORIDE [Suspect]
     Active Substance: EPIRUBICIN HYDROCHLORIDE
     Indication: Breast cancer female
     Dosage: 127 THOUSAND  MG, QD (DILUTED WITH NS 100 ML) (SECOND CHEMOTHERAPY), (AIDASHENG)
     Route: 041
     Dates: start: 20220707, end: 20220707
  6. EPIRUBICIN HYDROCHLORIDE [Suspect]
     Active Substance: EPIRUBICIN HYDROCHLORIDE
     Indication: Chemotherapy
  7. MECAPEGFILGRASTIM [Suspect]
     Active Substance: MECAPEGFILGRASTIM
     Indication: Breast cancer female
     Dosage: (AIDUO) 6 MG ON THE THIRD DAY, (SECOND CHEMOTHERAPY)
     Route: 058
     Dates: start: 20220709, end: 20220709

REACTIONS (2)
  - White blood cell count decreased [Recovered/Resolved]
  - Agranulocytosis [Recovered/Resolved]

NARRATIVE: CASE EVENT DATE: 20220714
